FAERS Safety Report 13899511 (Version 2)
Quarter: 2021Q4

REPORT INFORMATION
  Report Type: Report from Study
  Country: US (occurrence: US)
  Receive Date: 20170823
  Receipt Date: 20211110
  Transmission Date: 20220303
  Serious: Yes (Other)
  Sender: FDA-Public Use
  Company Number: US-JAZZ-2017-US-008468

PATIENT
  Sex: Female

DRUGS (19)
  1. XYREM [Suspect]
     Active Substance: SODIUM OXYBATE
     Indication: Somnolence
     Dosage: 2.25 GRAM, BID
     Route: 048
     Dates: start: 201402, end: 201404
  2. XYREM [Suspect]
     Active Substance: SODIUM OXYBATE
     Indication: Narcolepsy
     Dosage: 3 GRAM,BID
     Route: 048
     Dates: start: 201404, end: 201508
  3. XYREM [Suspect]
     Active Substance: SODIUM OXYBATE
     Dosage: 4 GRAM,BID
     Route: 048
     Dates: start: 201508
  4. NABUMETONE [Concomitant]
     Active Substance: NABUMETONE
  5. MOBIC [Concomitant]
     Active Substance: MELOXICAM
  6. CELEBREX [Concomitant]
     Active Substance: CELECOXIB
  7. IBUPROFEN [Concomitant]
     Active Substance: IBUPROFEN
  8. PRILOSEC [Concomitant]
     Active Substance: OMEPRAZOLE MAGNESIUM
  9. TOPROL XL [Concomitant]
     Active Substance: METOPROLOL SUCCINATE
  10. COSOPT PF [Concomitant]
     Active Substance: DORZOLAMIDE HYDROCHLORIDE\TIMOLOL MALEATE
  11. FISH OIL [Concomitant]
     Active Substance: FISH OIL
  12. LUMIGAN [Concomitant]
     Active Substance: BIMATOPROST
  13. PROVIGIL [Concomitant]
     Active Substance: MODAFINIL
  14. RESTASIS [Concomitant]
     Active Substance: CYCLOSPORINE
  15. TOPAMAX [Concomitant]
     Active Substance: TOPIRAMATE
  16. TRAMADOL HCL [Concomitant]
     Active Substance: TRAMADOL HYDROCHLORIDE
  17. VITAMIN B COMPLEX [Concomitant]
     Active Substance: CYANOCOBALAMIN\DEXPANTHENOL\NIACINAMIDE\PYRIDOXINE HYDROCHLORIDE\RIBOFLAVIN 5^-PHOSPHATE SODIUM\THIA
  18. VITAMIN C [Concomitant]
     Active Substance: ASCORBIC ACID
  19. ERGOCALCIFEROL [Concomitant]
     Active Substance: ERGOCALCIFEROL

REACTIONS (1)
  - Arthritis [Recovering/Resolving]
